FAERS Safety Report 7229652-8 (Version None)
Quarter: 2011Q1

REPORT INFORMATION
  Report Type: 
  Country: None (occurrence: None)
  Receive Date: 20110117
  Receipt Date: 20110106
  Transmission Date: 20110831
  Serious: Yes (Hospitalization)
  Sender: FDA-Public Use
  Company Number: PHHY2010JP83985

PATIENT
  Age: 58 Year
  Sex: Male

DRUGS (3)
  1. TEGRETOL [Suspect]
     Indication: EPILEPSY
     Dosage: 1000 MG, QD
     Route: 048
     Dates: start: 20081027
  2. PHENOBARBITAL [Concomitant]
     Indication: EPILEPSY
     Dosage: 30 MG, UNK
     Route: 048
     Dates: start: 20081027
  3. PHENYTOIN [Suspect]
     Indication: EPILEPSY
     Dosage: 325 MG, QD
     Route: 048
     Dates: start: 20081027

REACTIONS (8)
  - CEREBELLAR ATAXIA [None]
  - NYSTAGMUS [None]
  - DIZZINESS [None]
  - OPTICOKINETIC NYSTAGMUS TESTS ABNORMAL [None]
  - CEREBRAL PALSY [None]
  - SYNCOPE [None]
  - DYSLALIA [None]
  - HEADACHE [None]
